FAERS Safety Report 25802200 (Version 2)
Quarter: 2025Q3

REPORT INFORMATION
  Report Type: Spontaneous
  Country: US (occurrence: US)
  Receive Date: 20250915
  Receipt Date: 20250916
  Transmission Date: 20251020
  Serious: Yes (Death, Life-Threatening, Other)
  Sender: BRACCO
  Company Number: US-BRACCO-2025US06194

PATIENT
  Age: 65 Year
  Sex: Male

DRUGS (5)
  1. LUMASON [Suspect]
     Active Substance: SULFUR HEXAFLUORIDE
     Indication: Echocardiogram
     Route: 040
     Dates: start: 20250908, end: 20250908
  2. LUMASON [Suspect]
     Active Substance: SULFUR HEXAFLUORIDE
     Indication: Echocardiogram
     Route: 040
     Dates: start: 20250908, end: 20250908
  3. LUMASON [Suspect]
     Active Substance: SULFUR HEXAFLUORIDE
     Indication: Echocardiogram
     Route: 040
     Dates: start: 20250908, end: 20250908
  4. SALINE [Concomitant]
     Active Substance: SODIUM CHLORIDE
     Route: 042
     Dates: start: 20250908, end: 20250908
  5. SALINE [Concomitant]
     Active Substance: SODIUM CHLORIDE
     Dates: start: 20250908, end: 20250908

REACTIONS (2)
  - Pulseless electrical activity [Fatal]
  - Hypersensitivity [Fatal]

NARRATIVE: CASE EVENT DATE: 20250908
